FAERS Safety Report 4385713-2 (Version None)
Quarter: 2004Q2

REPORT INFORMATION
  Report Type: 
  Country: None (occurrence: None)
  Receive Date: 20040623
  Receipt Date: 20040603
  Transmission Date: 20050107
  Serious: Yes (Death, Hospitalization)
  Sender: FDA-Public Use
  Company Number: EWC031136921

PATIENT
  Age: 75 Year
  Sex: Male

DRUGS (3)
  1. XIGRIS [Suspect]
     Indication: MULTI-ORGAN FAILURE
     Dosage: 24 UG/KG/HR
     Dates: start: 20031023, end: 20031026
  2. XIGRIS [Suspect]
     Indication: SEPSIS
     Dosage: 24 UG/KG/HR
     Dates: start: 20031023, end: 20031026
  3. ANTIBIOTICS BROAD SPECTRUM [Concomitant]

REACTIONS (3)
  - ACQUIRED EPIDERMOLYSIS BULLOSA [None]
  - INCISION SITE HAEMORRHAGE [None]
  - NECROSIS [None]
